FAERS Safety Report 8277158-X (Version None)
Quarter: 2012Q2

REPORT INFORMATION
  Report Type: 
  Country: None (occurrence: None)
  Receive Date: 20120412
  Receipt Date: 20120329
  Transmission Date: 20120825
  Serious: Yes (Hospitalization, Other)
  Sender: FDA-Public Use
  Company Number: JP-PFIZER INC-2011316236

PATIENT
  Age: 33 Year
  Sex: Female

DRUGS (8)
  1. AMLODIPINE [Concomitant]
     Indication: HYPERTENSION
     Dosage: UNK
     Dates: end: 20110418
  2. FAMOTIDINE [Concomitant]
     Indication: GASTRITIS PROPHYLAXIS
     Dosage: UNK
     Dates: end: 20110418
  3. TRICHLORMETHIAZIDE [Concomitant]
     Indication: HYPERTENSION
     Dosage: UNK
     Dates: end: 20110418
  4. KERLONE [Concomitant]
     Indication: HYPERTENSION
     Dosage: UNK
     Dates: end: 20110418
  5. CEFAZOLIN SODIUM [Concomitant]
     Dosage: UNK
     Dates: end: 20110418
  6. LASIX [Concomitant]
     Indication: HYPERTENSION
     Dosage: UNK
     Dates: end: 20110418
  7. OLMESARTAN MEDOXOMIL [Suspect]
     Indication: HYPERTENSION
     Dosage: UNK
     Dates: end: 20110418
  8. RASILEZ [Suspect]
     Indication: HYPERTENSION
     Dosage: UNK
     Dates: end: 20110418

REACTIONS (4)
  - DRUG ERUPTION [None]
  - RENAL FAILURE ACUTE [None]
  - MALAISE [None]
  - DECREASED APPETITE [None]
